FAERS Safety Report 13691661 (Version 4)
Quarter: 2017Q3

REPORT INFORMATION
  Report Type: Report from Study
  Country: US (occurrence: US)
  Receive Date: 20170626
  Receipt Date: 20170810
  Transmission Date: 20171127
  Serious: Yes (Hospitalization)
  Sender: FDA-Public Use
  Company Number: US-ACTELION-A-US2017-149883

PATIENT
  Age: 65 Year
  Sex: Female
  Weight: 51.25 kg

DRUGS (7)
  1. VELETRI [Suspect]
     Active Substance: EPOPROSTENOL
     Indication: PULMONARY ARTERIAL HYPERTENSION
     Dosage: 62 NG/KG, PER MIN
     Route: 042
  2. SILDENAFIL. [Concomitant]
     Active Substance: SILDENAFIL
  3. ADCIRCA [Concomitant]
     Active Substance: TADALAFIL
  4. VELETRI [Suspect]
     Active Substance: EPOPROSTENOL
     Dosage: 56 NG/KG, PER MIN
     Route: 042
  5. LETAIRIS [Concomitant]
     Active Substance: AMBRISENTAN
  6. REMODULIN [Concomitant]
     Active Substance: TREPROSTINIL
  7. OXYGEN. [Concomitant]
     Active Substance: OXYGEN
     Dosage: 6 L, UNK

REACTIONS (11)
  - Disorientation [Unknown]
  - Unevaluable event [Unknown]
  - Dyspnoea [Unknown]
  - Oxygen saturation decreased [Unknown]
  - Feeling hot [Unknown]
  - Bone pain [Unknown]
  - Hypercalcaemia [Unknown]
  - Lung disorder [Unknown]
  - Heart rate increased [Unknown]
  - Diarrhoea [Unknown]
  - Device use error [Unknown]

NARRATIVE: CASE EVENT DATE: 20170615
